FAERS Safety Report 23244966 (Version 1)
Quarter: 2023Q4

REPORT INFORMATION
  Report Type: Other
  Country: TR (occurrence: None)
  Receive Date: 20231130
  Receipt Date: 20231130
  Transmission Date: 20240109
  Serious: Yes (Other)
  Sender: FDA-Public Use
  Company Number: TR-ROCHE-3453122

PATIENT
  Age: 10 Year
  Sex: Male

DRUGS (3)
  1. RITUXIMAB [Suspect]
     Active Substance: RITUXIMAB
     Indication: Nephrotic syndrome
     Dosage: TWO MORE DOSES WITHIN 1-YEAR PERIOD TOTAL: 6 DOSES
     Route: 041
  2. METRONIDAZOLE [Concomitant]
     Active Substance: METRONIDAZOLE
  3. TACROLIMUS [Concomitant]
     Active Substance: TACROLIMUS

REACTIONS (2)
  - Colitis ulcerative [Recovered/Resolved]
  - Abscess intestinal [Unknown]
